FAERS Safety Report 12051877 (Version 2)
Quarter: 2016Q1

REPORT INFORMATION
  Report Type: Report from Study
  Country: US (occurrence: US)
  Receive Date: 20160209
  Receipt Date: 20160309
  Transmission Date: 20160526
  Serious: No
  Sender: FDA-Public Use
  Company Number: US-AMGEN-USASL2016013445

PATIENT
  Age: 72 Year
  Sex: Female
  Weight: 80.73 kg

DRUGS (1)
  1. ENBREL [Suspect]
     Active Substance: ETANERCEPT
     Indication: PSORIASIS
     Dosage: 50 MG, QWK
     Route: 058
     Dates: start: 20150424

REACTIONS (3)
  - Psoriasis [Unknown]
  - Device defective [Unknown]
  - Liquid product physical issue [Unknown]
